FAERS Safety Report 5824295-2 (Version None)
Quarter: 2008Q3

REPORT INFORMATION
  Report Type: 
  Country: None (occurrence: None)
  Receive Date: 20080722
  Receipt Date: 20080714
  Transmission Date: 20090109
  Serious: Yes (Hospitalization)
  Sender: FDA-Public Use
  Company Number: 2008AL008212

PATIENT
  Age: 72 Day
  Sex: Male

DRUGS (4)
  1. PHENYTOIN [Suspect]
     Indication: EPILEPSY
     Dosage: 200 MG;BID
  2. PERINDOPRIL ERBUMINE [Concomitant]
  3. OMEPRAZOLE [Concomitant]
  4. INDAPAMIDE [Concomitant]

REACTIONS (6)
  - ANTICOAGULATION DRUG LEVEL ABOVE THERAPEUTIC [None]
  - BALANCE DISORDER [None]
  - CEREBROVASCULAR ACCIDENT [None]
  - COORDINATION ABNORMAL [None]
  - FALL [None]
  - TREMOR [None]
